FAERS Safety Report 8410544-3 (Version None)
Quarter: 2012Q2

REPORT INFORMATION
  Report Type: 
  Country: None (occurrence: None)
  Receive Date: 20120529
  Receipt Date: 20031024
  Transmission Date: 20120825
  Serious: Yes (Hospitalization)
  Sender: FDA-Public Use
  Company Number: 02100-USA-03-0625

PATIENT
  Age: 89 Year
  Sex: Male

DRUGS (9)
  1. PLAVIX [Concomitant]
  2. PROTONIX [Concomitant]
  3. TRENTAL (PENTOXYIFYLLINE) [Concomitant]
  4. ASPIRIN [Concomitant]
  5. ATENOLOL [Concomitant]
  6. ZOCOR [Concomitant]
  7. PLETAL [Suspect]
     Dosage: 100 MG, BID, ORAL ; 100 MG, SINGLE, ORAL ; 100 MG, SINGLE, ORAL
     Route: 048
     Dates: start: 20030917, end: 20030917
  8. PLETAL [Suspect]
     Dosage: 100 MG, BID, ORAL ; 100 MG, SINGLE, ORAL ; 100 MG, SINGLE, ORAL
     Route: 048
     Dates: start: 20030918, end: 20030918
  9. PLETAL [Suspect]
     Dosage: 100 MG, BID, ORAL ; 100 MG, SINGLE, ORAL ; 100 MG, SINGLE, ORAL
     Route: 048
     Dates: start: 20031014, end: 20031014

REACTIONS (2)
  - RESPIRATORY ARREST [None]
  - LOSS OF CONSCIOUSNESS [None]
